FAERS Safety Report 15742610 (Version 4)
Quarter: 2023Q4

REPORT INFORMATION
  Report Type: Report from Study
  Country: ES (occurrence: ES)
  Receive Date: 20181219
  Receipt Date: 20231229
  Transmission Date: 20240110
  Serious: Yes (Death)
  Sender: FDA-Public Use
  Company Number: None

PATIENT
  Sex: Female

DRUGS (2)
  1. DARUNAVIR [Suspect]
     Active Substance: DARUNAVIR
     Indication: HIV infection
     Route: 048
  2. RALTEGRAVIR [Interacting]
     Active Substance: RALTEGRAVIR
     Indication: HIV infection
     Route: 065

REACTIONS (6)
  - Sepsis [Fatal]
  - Blood creatine phosphokinase increased [Unknown]
  - Anxiety [Unknown]
  - Diarrhoea [Unknown]
  - Exposure during pregnancy [Unknown]
  - Drug interaction [Unknown]
